FAERS Safety Report 5692876-5 (Version None)
Quarter: 2008Q2

REPORT INFORMATION
  Report Type: 
  Country: None (occurrence: None)
  Receive Date: 20080401
  Receipt Date: 20080324
  Transmission Date: 20081010
  Serious: Yes (Other)
  Sender: FDA-Public Use
  Company Number: S08-USA-00168-01

PATIENT
  Age: 81 Year
  Sex: Female

DRUGS (6)
  1. LEXAPRO [Suspect]
     Indication: ANXIETY
     Dosage: 10 MG ONCE PO
     Route: 048
     Dates: start: 20071220, end: 20071220
  2. LEXAPRO [Suspect]
     Indication: DEPRESSION
     Dosage: 10 MG ONCE PO
     Route: 048
     Dates: start: 20071220, end: 20071220
  3. LEXAPRO [Suspect]
     Indication: ANXIETY
     Dosage: 5 MG QD PO
     Route: 048
     Dates: start: 20071221, end: 20080101
  4. LEXAPRO [Suspect]
     Indication: DEPRESSION
     Dosage: 5 MG QD PO
     Route: 048
     Dates: start: 20071221, end: 20080101
  5. TOPROL-XL [Concomitant]
  6. NEXIUM (ESOMEPHRAZOLE) [Concomitant]

REACTIONS (10)
  - ACTIVITIES OF DAILY LIVING IMPAIRED [None]
  - ASTHENIA [None]
  - BLOOD PRESSURE DECREASED [None]
  - FACIAL PALSY [None]
  - FATIGUE [None]
  - HEADACHE [None]
  - HYPERHIDROSIS [None]
  - INSOMNIA [None]
  - NAUSEA [None]
  - VISION BLURRED [None]
